FAERS Safety Report 19621219 (Version 1)
Quarter: 2021Q3

REPORT INFORMATION
  Report Type: Spontaneous
  Country: US (occurrence: US)
  Receive Date: 20210728
  Receipt Date: 20210728
  Transmission Date: 20211014
  Serious: Yes (Other)
  Sender: FDA-Public Use
  Company Number: US-GLAXOSMITHKLINE-US2021GSK161225

PATIENT
  Sex: Male

DRUGS (2)
  1. RANITIDINE. [Suspect]
     Active Substance: RANITIDINE
     Indication: REFLUX LARYNGITIS
     Dosage: 300 MG, QD
     Route: 065
     Dates: start: 201202, end: 201202
  2. RANITIDINE. [Suspect]
     Active Substance: RANITIDINE
     Indication: REFLUX LARYNGITIS
     Dosage: 300 MG, QD
     Route: 065
     Dates: start: 201202, end: 201202

REACTIONS (1)
  - Renal cancer [Unknown]
